FAERS Safety Report 4985177-1 (Version None)
Quarter: 2006Q2

REPORT INFORMATION
  Report Type: 
  Country: None (occurrence: None)
  Receive Date: 20060427
  Receipt Date: 20050919
  Transmission Date: 20061013
  Serious: Yes (Hospitalization)
  Sender: FDA-Public Use
  Company Number: US-MERCK-0509USA02956

PATIENT
  Age: 56 Year
  Sex: Male
  Weight: 100 kg

DRUGS (1)
  1. VIOXX [Suspect]
     Indication: ARTHRITIS
     Route: 048
     Dates: start: 20010401

REACTIONS (5)
  - CARDIAC DISORDER [None]
  - CEREBROVASCULAR ACCIDENT [None]
  - FEAR [None]
  - MYOCARDIAL INFARCTION [None]
  - POLYTRAUMATISM [None]
